FAERS Safety Report 23331073 (Version 1)
Quarter: 2023Q4

REPORT INFORMATION
  Report Type: Spontaneous
  Country: MY (occurrence: MY)
  Receive Date: 20231222
  Receipt Date: 20231222
  Transmission Date: 20240109
  Serious: Yes (Other)
  Sender: FDA-Public Use
  Company Number: MY-002147023-NVSC2023MY266867

PATIENT
  Age: 64 Year
  Sex: Female

DRUGS (1)
  1. CEFAZOLIN [Suspect]
     Active Substance: CEFAZOLIN
     Indication: Bacteraemia
     Dosage: 1 G, QD ROUTE OF ADMIN (FREE TEXT): INTRAVENOUS DRIP
     Route: 041

REACTIONS (2)
  - Muscle twitching [Recovering/Resolving]
  - Feeling jittery [Recovering/Resolving]
